FAERS Safety Report 9078928 (Version 1)
Quarter: 2013Q1

REPORT INFORMATION
  Report Type: Spontaneous
  Country: US (occurrence: US)
  Receive Date: 20130130
  Receipt Date: 20130130
  Transmission Date: 20140127
  Serious: Yes (Hospitalization, Other)
  Sender: FDA-Public Use
  Company Number: US-ELI_LILLY_AND_COMPANY-US201301007261

PATIENT
  Sex: Female

DRUGS (3)
  1. HUMALOG LISPRO [Suspect]
     Indication: TYPE 2 DIABETES MELLITUS
     Dosage: 2 U, TID
  2. HUMALOG LISPRO [Suspect]
     Dosage: UNK, PRN
  3. LEVEMIR [Concomitant]

REACTIONS (2)
  - Glaucoma [Recovered/Resolved]
  - Incorrect storage of drug [Unknown]
